FAERS Safety Report 7224136-5 (Version None)
Quarter: 2011Q1

REPORT INFORMATION
  Report Type: 
  Country: None (occurrence: None)
  Receive Date: 20110113
  Receipt Date: 20110107
  Transmission Date: 20110831
  Serious: No
  Sender: FDA-Public Use
  Company Number: US-BIOGENIDEC-2011BI000925

PATIENT
  Sex: Female

DRUGS (1)
  1. AVONEX [Suspect]
     Indication: MULTIPLE SCLEROSIS
     Route: 030
     Dates: start: 20060628

REACTIONS (12)
  - MOBILITY DECREASED [None]
  - MYALGIA [None]
  - JOINT CREPITATION [None]
  - ARTHROPATHY [None]
  - FATIGUE [None]
  - ARTHRITIS [None]
  - PAIN IN EXTREMITY [None]
  - GAIT DISTURBANCE [None]
  - BONE PAIN [None]
  - FIBROMYALGIA [None]
  - HYPERHIDROSIS [None]
  - MUSCULOSKELETAL PAIN [None]
